FAERS Safety Report 7740890-8 (Version None)
Quarter: 2011Q3

REPORT INFORMATION
  Report Type: 
  Country: None (occurrence: None)
  Receive Date: 20110909
  Receipt Date: 20110906
  Transmission Date: 20111222
  Serious: Yes (Hospitalization)
  Sender: FDA-Public Use
  Company Number: KR-BAYER-2011-082284

PATIENT
  Age: 46 Year
  Sex: Female

DRUGS (1)
  1. GADAVIST [Suspect]
     Indication: NUCLEAR MAGNETIC RESONANCE IMAGING BRAIN
     Dosage: 7.5 ML, ONCE
     Dates: start: 20110906, end: 20110906

REACTIONS (6)
  - CHEST PAIN [None]
  - VOMITING [None]
  - ABDOMINAL PAIN [None]
  - FOAMING AT MOUTH [None]
  - SYNCOPE [None]
  - HEADACHE [None]
